FAERS Safety Report 14235621 (Version 1)
Quarter: 2017Q4

REPORT INFORMATION
  Report Type: Spontaneous
  Country: US (occurrence: US)
  Receive Date: 20171129
  Receipt Date: 20171129
  Transmission Date: 20180321
  Serious: No
  Sender: FDA-Public Use
  Company Number: US-DRREDDYS-USA/USA/17/0093894

PATIENT
  Age: 7 Year
  Sex: Male
  Weight: 22.7 kg

DRUGS (2)
  1. SERNIVO [Suspect]
     Active Substance: BETAMETHASONE DIPROPIONATE
     Indication: TINEA INFECTION
     Route: 065
  2. SERNIVO [Suspect]
     Active Substance: BETAMETHASONE DIPROPIONATE
     Indication: OFF LABEL USE

REACTIONS (4)
  - Product use issue [Unknown]
  - Therapeutic response unexpected [Unknown]
  - Drug prescribing error [Unknown]
  - Off label use [Unknown]
